FAERS Safety Report 12408878 (Version 1)
Quarter: 2016Q2

REPORT INFORMATION
  Report Type: Spontaneous
  Country: US (occurrence: US)
  Receive Date: 20160526
  Receipt Date: 20160526
  Transmission Date: 20160815
  Serious: Yes (Hospitalization)
  Sender: FDA-Public Use
  Company Number: US-ROXANE LABORATORIES, INC.-2016-RO-00966RO

PATIENT
  Age: 47 Year
  Sex: Male

DRUGS (1)
  1. PREDNISONE TABLETS USP, 5MG [Suspect]
     Active Substance: PREDNISONE
     Indication: GLOMERULAR VASCULAR DISORDER
     Route: 065

REACTIONS (1)
  - Granulomatosis with polyangiitis [Unknown]
